FAERS Safety Report 6646098-1 (Version None)
Quarter: 2010Q1

REPORT INFORMATION
  Report Type: 
  Country: None (occurrence: None)
  Receive Date: 20100323
  Receipt Date: 20100315
  Transmission Date: 20100710
  Serious: Yes (Hospitalization, Other)
  Sender: FDA-Public Use
  Company Number: US-TEVA-228238USA

PATIENT
  Age: 82 Year
  Sex: Female

DRUGS (1)
  1. SOTALOL HCL [Suspect]
     Indication: CARDIOMYOPATHY

REACTIONS (2)
  - ELECTROCARDIOGRAM QT PROLONGED [None]
  - STRESS CARDIOMYOPATHY [None]
